FAERS Safety Report 16599225 (Version 6)
Quarter: 2021Q3

REPORT INFORMATION
  Report Type: Report from Study
  Country: US (occurrence: US)
  Receive Date: 20190719
  Receipt Date: 20210811
  Transmission Date: 20211014
  Serious: Yes (Hospitalization, Other)
  Sender: FDA-Public Use
  Company Number: US-SA-2019SA052495

PATIENT
  Age: 75 Year
  Sex: Female

DRUGS (4)
  1. VANDETANIB. [Suspect]
     Active Substance: VANDETANIB
     Indication: THYROID CANCER
     Dosage: 100 MG DAILY, ALTERNATING WITH 200 MG EVERY OTHER DAY
     Route: 048
     Dates: start: 20190115
  2. VANDETANIB. [Suspect]
     Active Substance: VANDETANIB
     Dosage: 100 MG, QD
     Route: 048
     Dates: start: 20190116, end: 20210802
  3. NITROFURANTOIN. [Concomitant]
     Active Substance: NITROFURANTOIN
  4. TRAMADOL. [Concomitant]
     Active Substance: TRAMADOL
     Dosage: UNK

REACTIONS (17)
  - Vomiting [Unknown]
  - Pharyngitis streptococcal [Unknown]
  - Diarrhoea [Not Recovered/Not Resolved]
  - Therapy cessation [Unknown]
  - Blood pressure abnormal [Unknown]
  - Cough [Not Recovered/Not Resolved]
  - Nausea [Unknown]
  - Blood pressure fluctuation [Not Recovered/Not Resolved]
  - Tachycardia [Unknown]
  - Memory impairment [Unknown]
  - Heart rate abnormal [Unknown]
  - Illness [Unknown]
  - Product dose omission issue [Unknown]
  - Rhinorrhoea [Not Recovered/Not Resolved]
  - Urine abnormality [Unknown]
  - Headache [Unknown]
  - Therapeutic response unexpected [Unknown]

NARRATIVE: CASE EVENT DATE: 201907
